FAERS Safety Report 18611063 (Version 1)
Quarter: 2020Q4

REPORT INFORMATION
  Report Type: Spontaneous
  Country: US (occurrence: US)
  Receive Date: 20201213
  Receipt Date: 20201213
  Transmission Date: 20210114
  Serious: Yes (Hospitalization, Disabling, Other)
  Sender: FDA-Public Use
  Company Number: None

PATIENT
  Age: 65 Year
  Sex: Female

DRUGS (4)
  1. VITAMIN D3 [Concomitant]
     Active Substance: CHOLECALCIFEROL
  2. PROBIOTIC [Concomitant]
     Active Substance: PROBIOTICS NOS
  3. MULTIVITAMIN [Concomitant]
     Active Substance: VITAMINS
  4. OCREVUS [Suspect]
     Active Substance: OCRELIZUMAB
     Indication: MULTIPLE SCLEROSIS
     Dosage: ?          OTHER FREQUENCY:TWICE A YEAR;?
     Dates: start: 20190808, end: 20200824

REACTIONS (5)
  - Disability [None]
  - Depression [None]
  - Muscle spasms [None]
  - Refusal of treatment by patient [None]
  - Mobility decreased [None]

NARRATIVE: CASE EVENT DATE: 20200824
